FAERS Safety Report 24284009 (Version 1)
Quarter: 2024Q3

REPORT INFORMATION
  Report Type: Spontaneous
  Country: JP (occurrence: JP)
  Receive Date: 20240905
  Receipt Date: 20240905
  Transmission Date: 20241017
  Serious: Yes (Other)
  Sender: ABBVIE
  Company Number: JP-IRONWOOD PHARMACEUTICALS, INC.-IRWD2024001249

PATIENT
  Age: 7 Decade
  Sex: Female

DRUGS (7)
  1. LINACLOTIDE [Suspect]
     Active Substance: LINACLOTIDE
     Indication: Product used for unknown indication
     Dosage: PREPARATION FOR ORAL USE(NOS)?FORM OF ADMINISTRATION: TABLET
     Route: 048
  2. LINACLOTIDE [Suspect]
     Active Substance: LINACLOTIDE
     Indication: Product used for unknown indication
     Dosage: PREPARATION FOR ORAL USE(NOS)?FORM OF ADMINISTRATION: TABLET
     Route: 048
  3. SENNOSIDES [Suspect]
     Active Substance: SENNOSIDES
     Indication: Product used for unknown indication
     Dosage: PREPARATION FOR ORAL USE(NOS)
     Route: 048
  4. SENNOSIDES [Suspect]
     Active Substance: SENNOSIDES
     Indication: Product used for unknown indication
     Dosage: PREPARATION FOR ORAL USE(NOS)
     Route: 048
  5. SODIUM PICOSULFATE [Suspect]
     Active Substance: SODIUM PICOSULFATE
     Indication: Product used for unknown indication
     Dosage: 10-15 DROPS
     Route: 048
  6. ELOBIXIBAT [Suspect]
     Active Substance: ELOBIXIBAT
     Indication: Product used for unknown indication
     Dosage: PREPARATION FOR ORAL USE(NOS)
     Route: 048
  7. LACTULOSE [Suspect]
     Active Substance: LACTULOSE
     Indication: Product used for unknown indication
     Dosage: PREPARATION FOR ORAL USE(NOS)
     Route: 048

REACTIONS (3)
  - Acidosis hyperchloraemic [Recovering/Resolving]
  - Diarrhoea [Unknown]
  - Anal incontinence [Unknown]
